FAERS Safety Report 4610813-9 (Version None)
Quarter: 2005Q2

REPORT INFORMATION
  Report Type: 
  Country: None (occurrence: None)
  Receive Date: 20050223
  Receipt Date: 20040216
  Transmission Date: 20051028
  Serious: Yes (Hospitalization)
  Sender: FDA-Public Use
  Company Number: WAES 0402USA01141

PATIENT
  Age: 70 Year
  Sex: Male

DRUGS (3)
  1. ZOCOR [Suspect]
     Dosage: 80 MG/DAILY/PO,  40 MG/ DAILY / PO
     Route: 048
     Dates: end: 20040125
  2. ZOCOR [Suspect]
     Dosage: 80 MG/DAILY/PO,  40 MG/ DAILY / PO
     Route: 048
     Dates: start: 20040126, end: 20040211
  3. GEMFIBROZIL [Concomitant]

REACTIONS (1)
  - BLOOD CREATINE PHOSPHOKINASE INCREASED [None]
